FAERS Safety Report 17630227 (Version 1)
Quarter: 2020Q2

REPORT INFORMATION
  Report Type: Spontaneous
  Country: US (occurrence: US)
  Receive Date: 20200404
  Receipt Date: 20200404
  Transmission Date: 20200713
  Serious: Yes (Other)
  Sender: FDA-Public Use
  Company Number: None

PATIENT
  Age: 73 Year
  Sex: Female
  Weight: 49.5 kg

DRUGS (6)
  1. PROLIA [Concomitant]
     Active Substance: DENOSUMAB
  2. DAILY VITAMIN SUPPLEMENT [Concomitant]
  3. CALCIUM SUPPLEMENT [Concomitant]
     Active Substance: CALCIUM
  4. DOXYCYCLINE HCL [Concomitant]
     Active Substance: DOXYCYCLINE HYDROCHLORIDE
  5. TYMLOS [Suspect]
     Active Substance: ABALOPARATIDE
     Indication: OSTEOPOROSIS
     Dosage: ?          QUANTITY:1 INJECTION(S);?
     Route: 058
     Dates: start: 20181101, end: 20200306
  6. VITAMIN D3 [Concomitant]
     Active Substance: CHOLECALCIFEROL

REACTIONS (1)
  - Urine calcium increased [None]

NARRATIVE: CASE EVENT DATE: 20200302
